FAERS Safety Report 16354115 (Version 2)
Quarter: 2020Q3

REPORT INFORMATION
  Report Type: Spontaneous
  Country: US (occurrence: US)
  Receive Date: 20190524
  Receipt Date: 20200930
  Transmission Date: 20201102
  Serious: Yes (Other)
  Sender: FDA-Public Use
  Company Number: US-ASTRAZENECA-2019SE75885

PATIENT
  Age: 57 Year
  Sex: Male
  Weight: 93 kg

DRUGS (42)
  1. PRILOSEC [Suspect]
     Active Substance: OMEPRAZOLE MAGNESIUM
     Indication: GASTROOESOPHAGEAL REFLUX DISEASE
     Route: 048
     Dates: start: 20100429
  2. PRILOSEC [Suspect]
     Active Substance: OMEPRAZOLE MAGNESIUM
     Indication: GASTROOESOPHAGEAL REFLUX DISEASE
     Route: 048
     Dates: start: 20120618
  3. PREVACID [Suspect]
     Active Substance: LANSOPRAZOLE
     Indication: GASTROOESOPHAGEAL REFLUX DISEASE
     Route: 065
     Dates: start: 20100831, end: 20110804
  4. PREVACID [Suspect]
     Active Substance: LANSOPRAZOLE
     Indication: GASTROOESOPHAGEAL REFLUX DISEASE
     Dosage: GENERIC
     Route: 065
  5. CLONIDINE. [Concomitant]
     Active Substance: CLONIDINE
  6. CENTRUM SILVER [Concomitant]
     Active Substance: MINERALS\VITAMINS
  7. NIFEDICAL XL [Concomitant]
     Active Substance: NIFEDIPINE
  8. TRAMADOL. [Concomitant]
     Active Substance: TRAMADOL
  9. LISINOPRIL. [Concomitant]
     Active Substance: LISINOPRIL
  10. IBUPROFEN. [Concomitant]
     Active Substance: IBUPROFEN
  11. PRILOSEC [Suspect]
     Active Substance: OMEPRAZOLE MAGNESIUM
     Indication: GASTROOESOPHAGEAL REFLUX DISEASE
     Route: 048
     Dates: start: 2007, end: 2017
  12. PRILOSEC [Suspect]
     Active Substance: OMEPRAZOLE MAGNESIUM
     Indication: GASTROOESOPHAGEAL REFLUX DISEASE
     Route: 048
     Dates: start: 20070226
  13. PROTONIX [Suspect]
     Active Substance: PANTOPRAZOLE SODIUM
     Indication: GASTROOESOPHAGEAL REFLUX DISEASE
     Route: 065
     Dates: start: 20130215
  14. CHLORPROMAZINE. [Concomitant]
     Active Substance: CHLORPROMAZINE
  15. PREVACID [Suspect]
     Active Substance: LANSOPRAZOLE
     Indication: GASTROOESOPHAGEAL REFLUX DISEASE
     Route: 065
     Dates: start: 20111101, end: 20111201
  16. BENICAR [Concomitant]
     Active Substance: OLMESARTAN MEDOXOMIL
  17. NAPROXEN. [Concomitant]
     Active Substance: NAPROXEN
  18. CIALIS [Concomitant]
     Active Substance: TADALAFIL
  19. WARFARIN [Concomitant]
     Active Substance: WARFARIN
  20. PRILOSEC [Suspect]
     Active Substance: OMEPRAZOLE MAGNESIUM
     Indication: GASTROOESOPHAGEAL REFLUX DISEASE
     Route: 048
  21. PREVACID 24 HR [Suspect]
     Active Substance: LANSOPRAZOLE
     Indication: GASTROOESOPHAGEAL REFLUX DISEASE
     Route: 065
  22. CYCLOBENZAPRINE. [Concomitant]
     Active Substance: CYCLOBENZAPRINE
  23. MUCINEX [Concomitant]
     Active Substance: GUAIFENESIN
  24. TAMSULOSIN [Concomitant]
     Active Substance: TAMSULOSIN
  25. CIPROFLOXACIN. [Concomitant]
     Active Substance: CIPROFLOXACIN
  26. PRILOSEC [Suspect]
     Active Substance: OMEPRAZOLE MAGNESIUM
     Indication: GASTROOESOPHAGEAL REFLUX DISEASE
     Dosage: GENERIC
     Route: 065
  27. PRILOSEC [Suspect]
     Active Substance: OMEPRAZOLE MAGNESIUM
     Indication: GASTROOESOPHAGEAL REFLUX DISEASE
     Dosage: GENERIC
     Route: 048
     Dates: start: 20160606
  28. DEXILANT [Suspect]
     Active Substance: DEXLANSOPRAZOLE
     Indication: GASTROOESOPHAGEAL REFLUX DISEASE
     Route: 065
     Dates: start: 20130424
  29. PROTONIX [Suspect]
     Active Substance: PANTOPRAZOLE SODIUM
     Indication: GASTROOESOPHAGEAL REFLUX DISEASE
     Dosage: GENERIC
     Route: 065
  30. OXYCODONE [Concomitant]
     Active Substance: OXYCODONE
  31. HYDROMORPHONE [Concomitant]
     Active Substance: HYDROMORPHONE
  32. NEXIUM [Suspect]
     Active Substance: ESOMEPRAZOLE MAGNESIUM
     Indication: GASTROOESOPHAGEAL REFLUX DISEASE
     Route: 048
     Dates: start: 2007, end: 2017
  33. NEXIUM [Suspect]
     Active Substance: ESOMEPRAZOLE MAGNESIUM
     Indication: GASTROOESOPHAGEAL REFLUX DISEASE
     Route: 048
     Dates: start: 20090511
  34. PRILOSEC [Suspect]
     Active Substance: OMEPRAZOLE MAGNESIUM
     Indication: GASTROOESOPHAGEAL REFLUX DISEASE
     Dosage: GENERIC
     Route: 048
     Dates: start: 20160509
  35. FLOMAX [Concomitant]
     Active Substance: TAMSULOSIN HYDROCHLORIDE
  36. ASPIRIN. [Concomitant]
     Active Substance: ASPIRIN
  37. OXYCONTIN [Concomitant]
     Active Substance: OXYCODONE HYDROCHLORIDE
  38. DIAZEPAM. [Concomitant]
     Active Substance: DIAZEPAM
  39. DOCQLACE [Concomitant]
     Active Substance: DOCUSATE SODIUM
  40. AVINZA [Concomitant]
     Active Substance: MORPHINE SULFATE
  41. DEXILANT [Suspect]
     Active Substance: DEXLANSOPRAZOLE
     Indication: GASTROOESOPHAGEAL REFLUX DISEASE
     Route: 065
     Dates: start: 2007, end: 2017
  42. METOPROLOL TARTRATE. [Concomitant]
     Active Substance: METOPROLOL TARTRATE

REACTIONS (4)
  - Stress [Unknown]
  - Renal failure [Not Recovered/Not Resolved]
  - Chronic kidney disease [Not Recovered/Not Resolved]
  - Acute kidney injury [Unknown]

NARRATIVE: CASE EVENT DATE: 2012
